FAERS Safety Report 6576836-8 (Version None)
Quarter: 2010Q1

REPORT INFORMATION
  Report Type: 
  Country: None (occurrence: None)
  Receive Date: 20100210
  Receipt Date: 20100203
  Transmission Date: 20100710
  Serious: Yes (Other)
  Sender: FDA-Public Use
  Company Number: GB-VALEANT-2010VX000215

PATIENT
  Age: 31 Year
  Sex: Male

DRUGS (3)
  1. ANCOTIL [Suspect]
     Route: 065
     Dates: start: 20100109, end: 20100119
  2. ANCOTIL [Suspect]
     Route: 065
     Dates: start: 20100126
  3. AMBISOME [Concomitant]
     Route: 065

REACTIONS (2)
  - LIVER FUNCTION TEST ABNORMAL [None]
  - RENAL IMPAIRMENT [None]
